FAERS Safety Report 7027669-X (Version None)
Quarter: 2010Q4

REPORT INFORMATION
  Report Type: 
  Country: None (occurrence: None)
  Receive Date: 20101004
  Receipt Date: 20100921
  Transmission Date: 20110411
  Serious: Yes (Hospitalization)
  Sender: FDA-Public Use
  Company Number: US-WATSON-2010-13019

PATIENT
  Age: 28 Year
  Sex: Male

DRUGS (2)
  1. PREDNISONE (WATSON LABORATORIES) [Suspect]
     Indication: HYPERTHYROIDISM
     Dosage: UNK
  2. METHIMAZOLE [Suspect]
     Indication: HYPERTHYROIDISM
     Dosage: UNK

REACTIONS (1)
  - THYROTOXIC PERIODIC PARALYSIS [None]
